FAERS Safety Report 9451701 (Version 3)
Quarter: 2013Q4

REPORT INFORMATION
  Report Type: Spontaneous
  Country: BR (occurrence: BR)
  Receive Date: 20130812
  Receipt Date: 20131125
  Transmission Date: 20140711
  Serious: Yes (Hospitalization, Other)
  Sender: FDA-Public Use
  Company Number: BR-BIOGENIDEC-2013BI071894

PATIENT
  Sex: Female

DRUGS (5)
  1. TYSABRI [Suspect]
     Indication: MULTIPLE SCLEROSIS
     Route: 042
     Dates: start: 201209, end: 201305
  2. CARBAMAZEPINE [Concomitant]
     Indication: DYSAESTHESIA
  3. CLONAZEPAM [Concomitant]
     Indication: ANXIETY
  4. CITOLOPRAM [Concomitant]
     Indication: DEPRESSION
  5. OMEPRAZOL [Concomitant]
     Indication: ABDOMINAL PAIN UPPER

REACTIONS (4)
  - BK virus infection [Recovered/Resolved]
  - Respiratory failure [Recovered/Resolved]
  - Cystitis haemorrhagic [Recovered/Resolved]
  - Venous thrombosis limb [Unknown]
